FAERS Safety Report 23968986 (Version 1)
Quarter: 2024Q2

REPORT INFORMATION
  Report Type: Spontaneous
  Country: CA (occurrence: CA)
  Receive Date: 20240612
  Receipt Date: 20240612
  Transmission Date: 20240715
  Serious: Yes (Disabling, Other)
  Sender: FDA-Public Use
  Company Number: CA-SANDOZ-SDZ2024CA056612

PATIENT
  Age: 44 Year
  Sex: Female
  Weight: 62.6 kg

DRUGS (1)
  1. ESTRADIOL [Suspect]
     Active Substance: ESTRADIOL
     Indication: Endometriosis
     Dosage: 75 UG, BIW
     Route: 062
     Dates: start: 20240519, end: 20240607

REACTIONS (1)
  - Endometriosis [Unknown]

NARRATIVE: CASE EVENT DATE: 20240601
